FAERS Safety Report 7093010-X (Version None)
Quarter: 2010Q4

REPORT INFORMATION
  Report Type: 
  Country: None (occurrence: None)
  Receive Date: 20101110
  Receipt Date: 20101027
  Transmission Date: 20110411
  Serious: Yes (Other)
  Sender: FDA-Public Use
  Company Number: US-ELI_LILLY_AND_COMPANY-US201010007184

PATIENT
  Sex: Male

DRUGS (2)
  1. HUMAN INSULIN (RDNA ORIGIN) [Suspect]
     Indication: DIABETES MELLITUS
     Dosage: UNK, UNK
  2. NOVOLOG [Concomitant]

REACTIONS (4)
  - DRUG HYPERSENSITIVITY [None]
  - HALLUCINATION [None]
  - HOMICIDAL IDEATION [None]
  - HYPERSENSITIVITY [None]
